FAERS Safety Report 4579584-9 (Version None)
Quarter: 2005Q1

REPORT INFORMATION
  Report Type: 
  Country: None (occurrence: None)
  Receive Date: 20050210
  Receipt Date: 20050126
  Transmission Date: 20050727
  Serious: Yes (Death)
  Sender: FDA-Public Use
  Company Number: 2004AL000879

PATIENT
  Age: 50 Year
  Sex: Male

DRUGS (3)
  1. CLONAZEPAM [Suspect]
     Dosage: PO
     Route: 048
  2. PREDNISONE [Suspect]
     Dosage: PO
     Route: 048
  3. ACETAMINOPHEN/OXYCODONE [Suspect]
     Dosage: PO
     Route: 048

REACTIONS (17)
  - ACTIVATED PARTIAL THROMBOPLASTIN TIME PROLONGED [None]
  - BLOOD BICARBONATE DECREASED [None]
  - BLOOD CHLORIDE DECREASED [None]
  - BLOOD GLUCOSE INCREASED [None]
  - BLOOD PH DECREASED [None]
  - BLOOD POTASSIUM DECREASED [None]
  - BLOOD PRESSURE DECREASED [None]
  - BLOOD SODIUM INCREASED [None]
  - BODY TEMPERATURE INCREASED [None]
  - CARDIAC ARREST [None]
  - COMPLETED SUICIDE [None]
  - HEART RATE INCREASED [None]
  - INTENTIONAL MISUSE [None]
  - LOSS OF CONSCIOUSNESS [None]
  - PO2 INCREASED [None]
  - PUPIL FIXED [None]
  - RESPIRATORY ARREST [None]
